FAERS Safety Report 7085078-1 (Version None)
Quarter: 2010Q4

REPORT INFORMATION
  Report Type: 
  Country: None (occurrence: None)
  Receive Date: 20101105
  Receipt Date: 20101028
  Transmission Date: 20110411
  Serious: Yes (Other)
  Sender: FDA-Public Use
  Company Number: GB-B.I. PHARMACEUTICALS,INC./RIDGEFIELD-2010-UK-01033UK

PATIENT
  Sex: Female

DRUGS (2)
  1. DIXARIT [Suspect]
     Indication: MENOPAUSAL SYMPTOMS
     Route: 048
  2. CITALOPRAM HYDROBROMIDE [Concomitant]

REACTIONS (2)
  - BLINDNESS [None]
  - VISION BLURRED [None]
